FAERS Safety Report 7997660-5 (Version None)
Quarter: 2011Q4

REPORT INFORMATION
  Report Type: 
  Country: None (occurrence: None)
  Receive Date: 20111221
  Receipt Date: 20111207
  Transmission Date: 20120403
  Serious: Yes (Death, Other)
  Sender: FDA-Public Use
  Company Number: US-ROCHE-1021167

PATIENT

DRUGS (2)
  1. LENALIDOMIDE [Suspect]
     Indication: B-CELL LYMPHOMA
     Route: 048
  2. MABTHERA [Suspect]
     Indication: B-CELL LYMPHOMA
     Route: 042

REACTIONS (2)
  - PNEUMONITIS [None]
  - NEUTROPENIA [None]
